FAERS Safety Report 19222749 (Version 1)
Quarter: 2021Q2

REPORT INFORMATION
  Report Type: Spontaneous
  Country: US (occurrence: US)
  Receive Date: 20210505
  Receipt Date: 20210505
  Transmission Date: 20210717
  Serious: No
  Sender: FDA-Public Use
  Company Number: US-B.I. PHARMACEUTICALS,INC./RIDGEFIELD-2021-BI-098632

PATIENT
  Age: 43 Year
  Sex: Female
  Weight: 81.2 kg

DRUGS (19)
  1. KORLYM [Suspect]
     Active Substance: MIFEPRISTONE
     Dates: start: 20180717, end: 20180728
  2. KORLYM [Suspect]
     Active Substance: MIFEPRISTONE
     Dates: start: 20190522
  3. JARDIANCE [Suspect]
     Active Substance: EMPAGLIFLOZIN
  4. LEVOTHYROXINE. [Suspect]
     Active Substance: LEVOTHYROXINE
     Indication: HYPOTHYROIDISM
  5. LEVOTHYROXINE. [Suspect]
     Active Substance: LEVOTHYROXINE
  6. CYCLOBENZAPRINE. [Concomitant]
     Active Substance: CYCLOBENZAPRINE
     Indication: PRODUCT USED FOR UNKNOWN INDICATION
  7. HUMALOG [Concomitant]
     Active Substance: INSULIN LISPRO
     Indication: PRODUCT USED FOR UNKNOWN INDICATION
  8. KORLYM [Suspect]
     Active Substance: MIFEPRISTONE
     Dates: start: 20190501
  9. JARDIANCE [Suspect]
     Active Substance: EMPAGLIFLOZIN
     Indication: PRODUCT USED FOR UNKNOWN INDICATION
     Route: 065
  10. KORLYM [Suspect]
     Active Substance: MIFEPRISTONE
     Dates: start: 20180821
  11. LEVOTHYROXINE. [Suspect]
     Active Substance: LEVOTHYROXINE
  12. LEVOTHYROXINE. [Suspect]
     Active Substance: LEVOTHYROXINE
  13. TRULICITY [Concomitant]
     Active Substance: DULAGLUTIDE
     Indication: PRODUCT USED FOR UNKNOWN INDICATION
  14. SPIRONOLACTONE. [Concomitant]
     Active Substance: SPIRONOLACTONE
     Indication: PRODUCT USED FOR UNKNOWN INDICATION
  15. KORLYM [Suspect]
     Active Substance: MIFEPRISTONE
     Indication: CUSHING^S SYNDROME
     Dates: start: 20180419, end: 20180515
  16. KORLYM [Suspect]
     Active Substance: MIFEPRISTONE
     Dates: start: 201808
  17. LEVOTHYROXINE. [Suspect]
     Active Substance: LEVOTHYROXINE
  18. SIGNIFOR [Concomitant]
     Active Substance: PASIREOTIDE DIASPARTATE
     Indication: PRODUCT USED FOR UNKNOWN INDICATION
  19. LANTUS [Concomitant]
     Active Substance: INSULIN GLARGINE
     Indication: PRODUCT USED FOR UNKNOWN INDICATION

REACTIONS (19)
  - Affective disorder [Not Recovered/Not Resolved]
  - Crying [Not Recovered/Not Resolved]
  - Mood swings [Not Recovered/Not Resolved]
  - Weight increased [Not Recovered/Not Resolved]
  - Vertigo [Recovered/Resolved]
  - Condition aggravated [Not Recovered/Not Resolved]
  - Drug interaction [Unknown]
  - Nausea [Recovering/Resolving]
  - Hypothyroidism [Recovered/Resolved]
  - Blood glucose decreased [Recovering/Resolving]
  - Bladder disorder [Unknown]
  - Dry mouth [Unknown]
  - Blood glucose fluctuation [Not Recovered/Not Resolved]
  - Cardiac murmur [Unknown]
  - Feeling abnormal [Unknown]
  - Palpitations [Recovered/Resolved]
  - Lacrimation increased [Not Recovered/Not Resolved]
  - Pollakiuria [Recovering/Resolving]
  - Feeling abnormal [Recovering/Resolving]
